FAERS Safety Report 9061429 (Version 1)
Quarter: 2013Q1

REPORT INFORMATION
  Report Type: Spontaneous
  Country: US (occurrence: None)
  Receive Date: 20130211
  Receipt Date: 20130211
  Transmission Date: 20140127
  Serious: Yes (Hospitalization, Other)
  Sender: FDA-Public Use
  Company Number: None

PATIENT
  Age: 42 Year
  Sex: Male
  Weight: 129.73 kg

DRUGS (3)
  1. HYDROCODONE [Suspect]
     Indication: PAIN
     Dosage: 1 TABLET EVERY 12 HOURS
     Dates: start: 20130103, end: 20130107
  2. HYDROCODONE [Suspect]
     Dosage: 1 TABLET EVERY 12 HOURS
     Dates: start: 20130103, end: 20130107
  3. TRAMADOL [Suspect]
     Dosage: 1 TO 2 TABLETS EVERY 6 HOURS
     Dates: start: 20130103

REACTIONS (3)
  - Malaise [None]
  - Product odour abnormal [None]
  - Product contamination [None]
